FAERS Safety Report 25478042 (Version 1)
Quarter: 2025Q2

REPORT INFORMATION
  Report Type: Spontaneous
  Country: US (occurrence: US)
  Receive Date: 20250625
  Receipt Date: 20250625
  Transmission Date: 20250716
  Serious: No
  Sender: SUNOVION
  Company Number: US-SUMITOMO PHARMA SWITZERLAND GMBH-2025SPA007054

PATIENT

DRUGS (2)
  1. GEMTESA [Suspect]
     Active Substance: VIBEGRON
     Indication: Product used for unknown indication
     Route: 065
     Dates: start: 2022
  2. GEMTESA [Suspect]
     Active Substance: VIBEGRON
     Route: 065

REACTIONS (2)
  - Drug ineffective [Unknown]
  - Product colour issue [Unknown]

NARRATIVE: CASE EVENT DATE: 20240101
